FAERS Safety Report 4782466-0 (Version None)
Quarter: 2005Q3

REPORT INFORMATION
  Report Type: 
  Country: None (occurrence: None)
  Receive Date: 20050929
  Receipt Date: 20041124
  Transmission Date: 20060218
  Serious: No
  Sender: FDA-Public Use
  Company Number: 389548

PATIENT
  Age: 38 Year
  Sex: Female

DRUGS (4)
  1. COREG [Suspect]
     Indication: HYPERTENSION
     Dosage: 25MG TWICE PER DAY
     Route: 048
     Dates: start: 20040801
  2. LEXAPRO [Concomitant]
  3. ATIVAN [Concomitant]
  4. ALDOMET [Concomitant]

REACTIONS (3)
  - ALOPECIA [None]
  - BLOOD PRESSURE INCREASED [None]
  - DRUG INEFFECTIVE [None]
